FAERS Safety Report 20047174 (Version 1)
Quarter: 2021Q4

REPORT INFORMATION
  Report Type: Spontaneous
  Country: HR (occurrence: HR)
  Receive Date: 20211109
  Receipt Date: 20211109
  Transmission Date: 20220304
  Serious: Yes (Life-Threatening, Hospitalization)
  Sender: FDA-Public Use
  Company Number: HR-CELLTRION INC.-2021HR014938

PATIENT

DRUGS (7)
  1. RITUXIMAB [Suspect]
     Active Substance: RITUXIMAB
     Indication: Systemic lupus erythematosus
  2. RITUXIMAB [Suspect]
     Active Substance: RITUXIMAB
     Indication: Lupus nephritis
  3. RITUXIMAB [Suspect]
     Active Substance: RITUXIMAB
     Indication: Thrombotic thrombocytopenic purpura
  4. METHYLPREDNISOLONE [Concomitant]
     Active Substance: METHYLPREDNISOLONE
     Indication: Miller Fisher syndrome
     Dosage: PULSE THERAPY
  5. METHYLPREDNISOLONE [Concomitant]
     Active Substance: METHYLPREDNISOLONE
     Indication: Evans syndrome
     Dosage: MAINTENANCE THERAPY
  6. CHLOROQUINE [Concomitant]
     Active Substance: CHLOROQUINE
     Indication: Miller Fisher syndrome
     Dosage: MAINTENANCE THERAPY
  7. CHLOROQUINE [Concomitant]
     Active Substance: CHLOROQUINE
     Indication: Evans syndrome

REACTIONS (12)
  - Thrombotic thrombocytopenic purpura [Unknown]
  - ADAMTS13 activity decreased [Unknown]
  - Haematoma [Unknown]
  - Miller Fisher syndrome [Unknown]
  - Evans syndrome [Unknown]
  - Facial paresis [Unknown]
  - Aphasia [Unknown]
  - Paresis [Unknown]
  - Thrombocytopenia [Unknown]
  - Haemolytic anaemia [Unknown]
  - Off label use [Unknown]
  - Drug effective for unapproved indication [Unknown]
